FAERS Safety Report 25244648 (Version 1)
Quarter: 2025Q2

REPORT INFORMATION
  Report Type: Spontaneous
  Country: US (occurrence: US)
  Receive Date: 20250428
  Receipt Date: 20250428
  Transmission Date: 20250716
  Serious: Yes (Hospitalization, Other)
  Sender: Steriscience PTE
  Company Number: US-STERISCIENCE B.V.-2025-ST-000804

PATIENT
  Age: 23 Year
  Sex: Female

DRUGS (1)
  1. ACETYLCYSTEINE [Suspect]
     Active Substance: ACETYLCYSTEINE
     Indication: Acute hepatic failure
     Route: 042

REACTIONS (2)
  - Hepatic encephalopathy [Unknown]
  - Off label use [Unknown]
